FAERS Safety Report 9413417 (Version 2)
Quarter: 2013Q3

REPORT INFORMATION
  Report Type: Spontaneous
  Country: JP (occurrence: None)
  Receive Date: 20130717
  Receipt Date: 20130918
  Transmission Date: 20140515
  Serious: Yes (Other)
  Sender: FDA-Public Use
  Company Number: ADR-2013-01162

PATIENT
  Age: 7 Year
  Sex: Female

DRUGS (1)
  1. GABALON [Suspect]
     Route: 037

REACTIONS (5)
  - Opisthotonus [None]
  - Pyrexia [None]
  - Stridor [None]
  - Blood creatine phosphokinase increased [None]
  - Withdrawal syndrome [None]
